FAERS Safety Report 24616549 (Version 1)
Quarter: 2024Q4

REPORT INFORMATION
  Report Type: Spontaneous
  Country: FR (occurrence: FR)
  Receive Date: 20241114
  Receipt Date: 20241114
  Transmission Date: 20250114
  Serious: Yes (Death)
  Sender: TEVA
  Company Number: None

PATIENT
  Age: 63 Year
  Sex: Female
  Weight: 72 kg

DRUGS (3)
  1. TRISENOX [Suspect]
     Active Substance: ARSENIC TRIOXIDE
     Indication: Acute promyelocytic leukaemia
     Route: 042
     Dates: start: 20240921, end: 20240922
  2. VESANOID [Suspect]
     Active Substance: TRETINOIN
     Indication: Acute promyelocytic leukaemia
     Dosage: 40MG X 2 PER DAY
     Route: 048
     Dates: start: 20240919, end: 20240923
  3. FILGRASTIM [Suspect]
     Active Substance: FILGRASTIM
     Indication: Product used for unknown indication
     Dosage: TIME INTERVAL: TOTAL: 48 MU/0.5 ML, SOLUTION FOR INJECTION OR INFUSION IN PRE-FILLED SYRINGE
     Route: 058
     Dates: start: 20240923, end: 20240923

REACTIONS (3)
  - Differentiation syndrome [Fatal]
  - Product prescribing error [Fatal]
  - Wrong patient received product [Fatal]

NARRATIVE: CASE EVENT DATE: 20240923
